FAERS Safety Report 6933278-0 (Version None)
Quarter: 2010Q3

REPORT INFORMATION
  Report Type: 
  Country: None (occurrence: None)
  Receive Date: 20100820
  Receipt Date: 20100416
  Transmission Date: 20110219
  Serious: Yes (Hospitalization)
  Sender: FDA-Public Use
  Company Number: US-RANBAXY-2010US-33706

PATIENT

DRUGS (8)
  1. GANCICLOVIR [Suspect]
     Indication: ANTIVIRAL PROPHYLAXIS
     Dosage: 1000 MG, TID
     Route: 048
     Dates: start: 20080922, end: 20081125
  2. ACYCLOVIR SODIUM [Suspect]
     Indication: ANTIVIRAL PROPHYLAXIS
     Dosage: 400 MG, BID
     Route: 048
     Dates: start: 20080922, end: 20081125
  3. MARIBAVIR (PLACEBO) [Suspect]
     Indication: ANTIVIRAL PROPHYLAXIS
     Dosage: 100 MG, BID
     Route: 048
     Dates: start: 20080922, end: 20081125
  4. BACTRIM [Concomitant]
     Indication: INFECTION PROPHYLAXIS
     Dosage: UNK, UNK
     Route: 065
  5. OMEPRAZOLE [Concomitant]
     Indication: GASTROOESOPHAGEAL REFLUX PROPHYLAXIS
     Dosage: UNK, UNK
     Route: 065
  6. PREDNISONE [Concomitant]
     Indication: PROPHYLAXIS
     Dosage: UNK, UNK
     Route: 065
  7. TACROLIMUS [Concomitant]
     Indication: PROPHYLAXIS AGAINST TRANSPLANT REJECTION
     Dosage: UNK, UNK
     Route: 065
  8. URSOCHOLIC ACID [Concomitant]
     Indication: CHOLESTASIS
     Dosage: UNK, UNK
     Route: 065

REACTIONS (2)
  - CYTOMEGALOVIRUS GASTROENTERITIS [None]
  - DRUG INEFFECTIVE [None]
